FAERS Safety Report 5585301-6 (Version None)
Quarter: 2008Q1

REPORT INFORMATION
  Report Type: 
  Country: None (occurrence: None)
  Receive Date: 20080109
  Receipt Date: 20080107
  Transmission Date: 20080703
  Serious: Yes (Life-Threatening)
  Sender: FDA-Public Use
  Company Number: SE-PURDUE-GBR_2008_0003582

PATIENT
  Age: 32 Year
  Sex: Female

DRUGS (5)
  1. OXYCONTIN [Suspect]
     Indication: DRUG USE FOR UNKNOWN INDICATION
     Route: 065
  2. LAMICTAL [Suspect]
     Indication: DRUG USE FOR UNKNOWN INDICATION
     Route: 065
  3. ANAFRANIL [Suspect]
     Indication: DRUG USE FOR UNKNOWN INDICATION
     Route: 065
  4. LYRICA [Suspect]
     Indication: DRUG USE FOR UNKNOWN INDICATION
     Route: 065
  5. LITHIONIT [Suspect]
     Indication: DRUG USE FOR UNKNOWN INDICATION
     Dosage: APPROXIMATELY 300 TABLETS
     Route: 065

REACTIONS (3)
  - DEPRESSION [None]
  - INTENTIONAL OVERDOSE [None]
  - SUICIDE ATTEMPT [None]
